FAERS Safety Report 7097647-3 (Version None)
Quarter: 2010Q4

REPORT INFORMATION
  Report Type: 
  Country: None (occurrence: None)
  Receive Date: 20101112
  Receipt Date: 20101105
  Transmission Date: 20110411
  Serious: Yes (Hospitalization)
  Sender: FDA-Public Use
  Company Number: DE-BIOGENIDEC-2010BI032962

PATIENT
  Age: 66 Year
  Sex: Female
  Weight: 68 kg

DRUGS (10)
  1. AVONEX [Suspect]
     Indication: RELAPSING-REMITTING MULTIPLE SCLEROSIS
     Route: 030
     Dates: start: 20040101, end: 20081201
  2. LEVOTHYROXINE SODIUM [Concomitant]
     Indication: POST PROCEDURAL HYPOTHYROIDISM
  3. PANTOPRAZOLE SODIUM [Concomitant]
     Indication: PROPHYLAXIS
  4. TELMISARTAN [Concomitant]
     Indication: HYPERTENSION
  5. HCT [Concomitant]
     Indication: HYPERTENSION
  6. AMITRIPTYLINE HCL [Concomitant]
     Indication: DEPRESSION
  7. DULOXETIN [Concomitant]
     Indication: DEPRESSION
  8. BACLOFEN [Concomitant]
     Indication: MULTIPLE SCLEROSIS
  9. URBASON [Concomitant]
     Indication: MULTIPLE SCLEROSIS
  10. DAPSON [Concomitant]
     Indication: PRODUCT USED FOR UNKNOWN INDICATION

REACTIONS (2)
  - DEEP VEIN THROMBOSIS [None]
  - PULMONARY EMBOLISM [None]
